FAERS Safety Report 7226885-1 (Version None)
Quarter: 2011Q1

REPORT INFORMATION
  Report Type: 
  Country: None (occurrence: None)
  Receive Date: 20110111
  Receipt Date: 20110111
  Transmission Date: 20110831
  Serious: Yes (Other)
  Sender: FDA-Public Use
  Company Number: None

PATIENT
  Age: 24 Year
  Sex: Male
  Weight: 93.4863 kg

DRUGS (2)
  1. DEXAMETHASONE [Concomitant]
  2. PROVERA [Suspect]
     Indication: ENDOMETRIAL DISORDER
     Dosage: 10 MGM. DAILY ONE DOSE
     Dates: start: 20101227

REACTIONS (6)
  - FATIGUE [None]
  - HEADACHE [None]
  - OEDEMA PERIPHERAL [None]
  - HYPOAESTHESIA [None]
  - FEELING ABNORMAL [None]
  - ASTHENIA [None]
